FAERS Safety Report 16383704 (Version 1)
Quarter: 2019Q2

REPORT INFORMATION
  Report Type: Spontaneous
  Country: US (occurrence: US)
  Receive Date: 20190426
  Receipt Date: 20190426
  Transmission Date: 20190711
  Serious: Yes (Other)
  Sender: FDA-Public Use
  Company Number: None

PATIENT
  Age: 66 Year
  Sex: Female
  Weight: 57.15 kg

DRUGS (12)
  1. LORAZEPAM. [Concomitant]
     Active Substance: LORAZEPAM
  2. FLUTICASONE SPRAY [Concomitant]
     Active Substance: FLUTICASONE
  3. PRILOSEC [Concomitant]
     Active Substance: OMEPRAZOLE MAGNESIUM
  4. ASPIRIN. [Concomitant]
     Active Substance: ASPIRIN
  5. PULMICORT FLEX INHALER [Concomitant]
  6. METOPROLOL SUCC ER [Concomitant]
     Active Substance: METOPROLOL SUCCINATE
  7. POTASSIUM OLER [Concomitant]
  8. GLUCOSAMINE [Concomitant]
     Active Substance: GLUCOSAMINE
  9. VIT D 3 [Concomitant]
  10. CYANOCOBALAMIN. [Concomitant]
     Active Substance: CYANOCOBALAMIN
  11. LORAZEPAM. [Suspect]
     Active Substance: LORAZEPAM
     Indication: POST-TRAUMATIC STRESS DISORDER
     Dosage: ?          QUANTITY:1 MG MILLIGRAM(S);?
     Route: 048
     Dates: start: 20190301, end: 20190303
  12. LEVOTHYROXINE SODIUM. [Concomitant]
     Active Substance: LEVOTHYROXINE SODIUM

REACTIONS (4)
  - Anxiety [None]
  - Feeling abnormal [None]
  - Panic attack [None]
  - Product substitution issue [None]

NARRATIVE: CASE EVENT DATE: 20190301
